FAERS Safety Report 7737417 (Version 2)
Quarter: 2012Q4

REPORT INFORMATION
  Report Type: 
  Country: US (occurrence: US)
  Receive Date: 20101223
  Receipt Date: 20121023
  Transmission Date: 20130627
  Serious: No
  Sender: FDA-Public Use
  Company Number: US-AMGEN-KDL440401

PATIENT
  Age: 55 Year
  Sex: Male

DRUGS (2)
  1. ENBREL [Suspect]
     Indication: PSORIATIC ARTHROPATHY
     Dosage: 50 mg, qwk
     Route: 058
     Dates: start: 20050201
  2. ENBREL [Suspect]
     Indication: PSORIASIS

REACTIONS (8)
  - Impaired healing [Not Recovered/Not Resolved]
  - Psoriatic arthropathy [Not Recovered/Not Resolved]
  - Abdominal discomfort [Recovered/Resolved]
  - Dizziness [Recovered/Resolved]
  - Bronchitis [Not Recovered/Not Resolved]
  - Psoriasis [Not Recovered/Not Resolved]
  - Injection site pain [Not Recovered/Not Resolved]
  - Psoriasis [Not Recovered/Not Resolved]
